FAERS Safety Report 18244176 (Version 2)
Quarter: 2021Q2

REPORT INFORMATION
  Report Type: Report from Study
  Country: BR (occurrence: BR)
  Receive Date: 20200908
  Receipt Date: 20210622
  Transmission Date: 20210717
  Serious: Yes (Other)
  Sender: FDA-Public Use
  Company Number: BR-JNJFOC-20200845652

PATIENT
  Age: 74 Year
  Sex: Female
  Weight: 84.5 kg

DRUGS (7)
  1. PURAN [Concomitant]
     Active Substance: LEVOTHYROXINE SODIUM
     Indication: THYROID DISORDER
  2. CHLOROCHIN [Concomitant]
     Active Substance: CHLOROQUINE PHOSPHATE
     Route: 065
  3. STELARA [Suspect]
     Active Substance: USTEKINUMAB
     Route: 058
     Dates: start: 20200518
  4. STELARA [Suspect]
     Active Substance: USTEKINUMAB
     Route: 058
     Dates: start: 20200418
  5. AZITHROMYCIN ANHYDROUS. [Concomitant]
     Active Substance: AZITHROMYCIN ANHYDROUS
     Route: 065
  6. GLYCIPHAGE [Concomitant]
     Indication: BLOOD GLUCOSE FLUCTUATION
  7. STELARA [Suspect]
     Active Substance: USTEKINUMAB
     Indication: PSORIASIS
     Route: 058
     Dates: start: 20190423

REACTIONS (8)
  - COVID-19 [Recovered/Resolved]
  - Panic attack [Unknown]
  - Acute respiratory distress syndrome [Recovering/Resolving]
  - Dengue fever [Recovered/Resolved]
  - Blood glucose fluctuation [Unknown]
  - Fall [Unknown]
  - Osteoarthritis [Unknown]
  - Back pain [Unknown]

NARRATIVE: CASE EVENT DATE: 20200729
